FAERS Safety Report 4578824-X (Version None)
Quarter: 2005Q1

REPORT INFORMATION
  Report Type: 
  Country: None (occurrence: None)
  Receive Date: 20050209
  Receipt Date: 20050209
  Transmission Date: 20050727
  Serious: Yes (Hospitalization)
  Sender: FDA-Public Use
  Company Number: None

PATIENT
  Age: 82 Year
  Sex: Female
  Weight: 84.8 kg

DRUGS (5)
  1. ASPIRIN [Suspect]
     Indication: PAIN IN EXTREMITY
     Dosage: 8 TABS/DAY PRN  CHRONIC/ OCCASIONAL (IBUP)]
  2. IBUPROFEN [Suspect]
     Indication: PAIN IN EXTREMITY
     Dosage: CHRONIC / OCCASIONAL PRN
  3. DIGOXIN [Suspect]
     Indication: ARRHYTHMIA
     Dosage: PRN [CHRONIC]
  4. TRAZODONE [Concomitant]
  5. REMIRYL [Concomitant]

REACTIONS (7)
  - DECREASED APPETITE [None]
  - DECREASED INTEREST [None]
  - DRUG LEVEL INCREASED [None]
  - FATIGUE [None]
  - GASTRIC ULCER [None]
  - INSOMNIA [None]
  - LETHARGY [None]
